FAERS Safety Report 18963876 (Version 1)
Quarter: 2021Q1

REPORT INFORMATION
  Report Type: Spontaneous
  Country: US (occurrence: US)
  Receive Date: 20210303
  Receipt Date: 20210303
  Transmission Date: 20210420
  Serious: Yes (Hospitalization, Other)
  Sender: FDA-Public Use
  Company Number: US-PFIZER INC-2021207234

PATIENT
  Age: 66 Year
  Sex: Female
  Weight: 46.27 kg

DRUGS (1)
  1. XELJANZ XR [Suspect]
     Active Substance: TOFACITINIB CITRATE
     Indication: RHEUMATOID ARTHRITIS
     Dosage: 11 MG, 1X/DAY
     Route: 048

REACTIONS (7)
  - Cellulitis [Unknown]
  - Scab [Unknown]
  - Impaired healing [Unknown]
  - Skin exfoliation [Unknown]
  - Skin lesion [Recovering/Resolving]
  - Squamous cell carcinoma of skin [Unknown]
  - Precancerous skin lesion [Unknown]
